FAERS Safety Report 15590587 (Version 1)
Quarter: 2018Q4

REPORT INFORMATION
  Report Type: Spontaneous
  Country: IT (occurrence: IT)
  Receive Date: 20181106
  Receipt Date: 20181106
  Transmission Date: 20190205
  Serious: Yes (Hospitalization, Other)
  Sender: FDA-Public Use
  Company Number: IT-LUPIN PHARMACEUTICALS INC.-2018-07658

PATIENT
  Age: 46 Year
  Sex: Male

DRUGS (5)
  1. IMIPENEM AND CILASTATIN [Suspect]
     Active Substance: CILASTATIN SODIUM\IMIPENEM
     Indication: MENINGITIS TUBERCULOUS
     Dosage: 500 MG, QID
     Route: 065
  2. CLARITHROMYCIN. [Suspect]
     Active Substance: CLARITHROMYCIN
     Indication: MENINGITIS TUBERCULOUS
     Dosage: 500 MG, BID
     Route: 065
  3. LINEZOLID. [Suspect]
     Active Substance: LINEZOLID
     Indication: MENINGITIS TUBERCULOUS
     Dosage: 600 MG, BID
     Route: 065
  4. AMIKACIN. [Suspect]
     Active Substance: AMIKACIN
     Indication: MENINGITIS TUBERCULOUS
     Dosage: 10 MG/KG, QD
     Route: 065
  5. CEFOXITIN [Suspect]
     Active Substance: CEFOXITIN SODIUM
     Indication: MENINGITIS TUBERCULOUS
     Dosage: 3 G, QID
     Route: 065

REACTIONS (4)
  - Thrombocytopenia [Recovering/Resolving]
  - Neurosensory hypoacusis [Recovering/Resolving]
  - Rash maculo-papular [Recovering/Resolving]
  - Electrocardiogram QT prolonged [Recovering/Resolving]
